FAERS Safety Report 9119325 (Version 1)
Quarter: 2013Q1

REPORT INFORMATION
  Report Type: Spontaneous
  Country: US (occurrence: None)
  Receive Date: 20130221
  Receipt Date: 20130221
  Transmission Date: 20140127
  Serious: Yes (Other)
  Sender: FDA-Public Use
  Company Number: None

PATIENT
  Age: 46 Year
  Sex: Male
  Weight: 113.4 kg

DRUGS (3)
  1. PLAVIX [Suspect]
     Indication: CATHETERISATION CARDIAC
     Dosage: 1 TABLET DAILY PO
     Route: 048
     Dates: start: 20050610, end: 20050708
  2. PLAVIX [Suspect]
     Indication: CORONARY ARTERIAL STENT INSERTION
     Dosage: 1 TABLET DAILY PO
     Route: 048
     Dates: start: 20050610, end: 20050708
  3. TICLID [Suspect]
     Dosage: 1 TABLET DAILY PO
     Route: 048
     Dates: start: 20050709, end: 20050725

REACTIONS (5)
  - Joint swelling [None]
  - Arthralgia [None]
  - Liver disorder [None]
  - White blood cell disorder [None]
  - Urine analysis abnormal [None]
